FAERS Safety Report 6844386-7 (Version None)
Quarter: 2010Q2

REPORT INFORMATION
  Report Type: 
  Country: None (occurrence: None)
  Receive Date: 20100629
  Receipt Date: 20100526
  Transmission Date: 20101027
  Serious: Yes (Other)
  Sender: FDA-Public Use
  Company Number: US-WYE-H15406610

PATIENT
  Age: 68 Year
  Sex: Female

DRUGS (2)
  1. PRISTIQ [Suspect]
     Indication: HEADACHE
     Dosage: ^1 DOSE^, ORAL
     Route: 048
     Dates: start: 20100401, end: 20100401
  2. PRISTIQ [Suspect]
     Indication: PROPHYLAXIS
     Dosage: ^1 DOSE^, ORAL
     Route: 048
     Dates: start: 20100401, end: 20100401

REACTIONS (3)
  - MYDRIASIS [None]
  - VISION BLURRED [None]
  - VISUAL ACUITY REDUCED [None]
